FAERS Safety Report 9455932 (Version 1)
Quarter: 2013Q3

REPORT INFORMATION
  Report Type: Spontaneous
  Country: US (occurrence: US)
  Receive Date: 20130813
  Receipt Date: 20130813
  Transmission Date: 20140515
  Serious: Yes (Other)
  Sender: FDA-Public Use
  Company Number: US-ABBOTT-13P-163-1130123-00

PATIENT
  Age: 46 Year
  Sex: Female
  Weight: 76.27 kg

DRUGS (14)
  1. DEPAKOTE [Suspect]
  2. DILANTIN [Suspect]
     Indication: PRODUCT USED FOR UNKNOWN INDICATION
  3. ZYPREXA [Suspect]
     Indication: BRAIN OPERATION
  4. KEPPRA [Suspect]
     Indication: EPILEPSY
     Dates: start: 1999, end: 200811
  5. KEPPRA [Suspect]
     Indication: CRANIOCEREBRAL INJURY
  6. TEGRETOL XR [Suspect]
     Indication: EPILEPSY
  7. TEGRETOL XR [Suspect]
     Indication: CRANIOCEREBRAL INJURY
  8. NOVOLOG [Suspect]
     Indication: DIABETES MELLITUS
  9. SYNTHROID [Concomitant]
     Indication: HYPOTHYROIDISM
     Dosage: 0.125 MG DAILY
  10. FOLIC ACID [Concomitant]
     Indication: PRODUCT USED FOR UNKNOWN INDICATION
     Dosage: 1 MG DAILY
  11. LAMICTAL [Concomitant]
     Indication: EPILEPSY
     Dosage: 1 TABLET (150 MG) IN AM; 1.5 TABLETS (225 MG) AT NIGHT
  12. ALTACE [Concomitant]
     Indication: BLOOD PRESSURE ABNORMAL
  13. PANTOPRAZOLE [Concomitant]
     Indication: GASTROOESOPHAGEAL REFLUX DISEASE
     Dosage: 40 MG DAILY
  14. CRESTOR [Concomitant]
     Indication: BLOOD CHOLESTEROL INCREASED
     Dosage: 20 MG DAILY

REACTIONS (13)
  - Brain operation [Unknown]
  - Cerebral cyst [Unknown]
  - Diabetes mellitus [Unknown]
  - Logorrhoea [Not Recovered/Not Resolved]
  - Organ failure [Unknown]
  - Chest pain [Unknown]
  - Pancreatitis [Unknown]
  - Alopecia [Unknown]
  - Weight decreased [Unknown]
  - Aggression [Unknown]
  - Speech disorder [Unknown]
  - Tremor [Unknown]
  - Tremor [Unknown]
